FAERS Safety Report 17061796 (Version 2)
Quarter: 2019Q4

REPORT INFORMATION
  Report Type: Report from Study
  Country: US (occurrence: US)
  Receive Date: 20191121
  Receipt Date: 20191203
  Transmission Date: 20200122
  Serious: Yes (Death)
  Sender: FDA-Public Use
  Company Number: US-EXELIXIS-CABO-19023061

PATIENT
  Sex: Male

DRUGS (2)
  1. LEVOTHYROXINE. [Concomitant]
     Active Substance: LEVOTHYROXINE
     Dosage: UNK
  2. CABOMETYX [Suspect]
     Active Substance: CABOZANTINIB S-MALATE
     Indication: LUNG ADENOCARCINOMA STAGE IV
     Dosage: 60 MG, QD
     Dates: start: 20190622, end: 20191009

REACTIONS (3)
  - Malignant neoplasm progression [Fatal]
  - Proteinuria [Unknown]
  - Off label use [Unknown]
